FAERS Safety Report 23466595 (Version 3)
Quarter: 2024Q2

REPORT INFORMATION
  Report Type: Spontaneous
  Country: US (occurrence: US)
  Receive Date: 20240201
  Receipt Date: 20240521
  Transmission Date: 20240716
  Serious: No
  Sender: FDA-Public Use
  Company Number: US-HORIZON THERAPEUTICS-HZN-2024-001140

PATIENT

DRUGS (7)
  1. KRYSTEXXA [Suspect]
     Active Substance: PEGLOTICASE
     Indication: Gouty tophus
     Dosage: FIRST INFUSION, 8 MG, EVERY 2 WEEKS
     Route: 042
     Dates: start: 20231026
  2. KRYSTEXXA [Suspect]
     Active Substance: PEGLOTICASE
     Dosage: SIXTH INFUSION, 8 MG, EVERY TWO WEEKS
     Route: 042
     Dates: start: 20240111
  3. KRYSTEXXA [Suspect]
     Active Substance: PEGLOTICASE
     Dosage: SEVENTH INFUSION, 8 MG, EVERY TWO WEEKS
     Route: 042
     Dates: start: 20240125
  4. METOPROLOL [Concomitant]
     Active Substance: METOPROLOL
     Indication: Hypertension
     Dosage: 100 MG, QD
     Route: 065
  5. ALBUTEROL [Concomitant]
     Active Substance: ALBUTEROL
     Indication: Asthma
     Route: 065
  6. AZATHIOPRINE [Concomitant]
     Active Substance: AZATHIOPRINE
     Dosage: 50 MG, QD
     Route: 065
  7. AMLODIPINE [Concomitant]
     Active Substance: AMLODIPINE BESYLATE
     Indication: Hypertension
     Dosage: 2.5 MG, QD
     Route: 065

REACTIONS (5)
  - Flushing [Recovered/Resolved]
  - Throat tightness [Recovered/Resolved]
  - Dyspnoea [Recovered/Resolved]
  - Chest pain [Recovered/Resolved]
  - Blood uric acid increased [Unknown]

NARRATIVE: CASE EVENT DATE: 20240123
